FAERS Safety Report 13175426 (Version 1)
Quarter: 2017Q1

REPORT INFORMATION
  Report Type: Spontaneous
  Country: US (occurrence: US)
  Receive Date: 20170201
  Receipt Date: 20170201
  Transmission Date: 20170428
  Serious: No
  Sender: FDA-Public Use
  Company Number: US-PFIZER INC-2017038994

PATIENT
  Age: 17 Year
  Sex: Male

DRUGS (10)
  1. GENOTROPIN [Suspect]
     Active Substance: SOMATROPIN
     Dosage: 1.8 MG, DAILY
     Dates: start: 201604
  2. TESTOSTERONE. [Concomitant]
     Active Substance: TESTOSTERONE
     Indication: DELAYED PUBERTY
     Dosage: UNK, MONTHLY (FOR 4 MONTHS; TWO FULL PRESCRIBED DOSES AND ONE HALF DOSE)
  3. GENOTROPIN [Suspect]
     Active Substance: SOMATROPIN
     Indication: GROWTH HORMONE DEFICIENCY
     Dosage: 3 MG, DAILY
     Dates: start: 20160419
  4. GENOTROPIN [Suspect]
     Active Substance: SOMATROPIN
     Dosage: 3 MG, DAILY
     Dates: start: 201609
  5. GENOTROPIN [Suspect]
     Active Substance: SOMATROPIN
     Dosage: UNK
     Route: 030
  6. GENOTROPIN [Suspect]
     Active Substance: SOMATROPIN
     Dosage: 2.5 MG, DAILY
  7. GENOTROPIN [Suspect]
     Active Substance: SOMATROPIN
     Dosage: 3 MG, DAILY (AT NIGHT)
     Dates: start: 20161105
  8. TESTOSTERONE. [Concomitant]
     Active Substance: TESTOSTERONE
     Dosage: 100 MG, MONTHLY
  9. LETROZOLE. [Concomitant]
     Active Substance: LETROZOLE
     Indication: FAILURE TO THRIVE
  10. TESTOSTERONE. [Concomitant]
     Active Substance: TESTOSTERONE
     Dosage: 50 MG, MONTHLY (FOR 4 MONTHS)

REACTIONS (4)
  - Pain in extremity [Recovered/Resolved]
  - Increased appetite [Unknown]
  - Injection site pain [Unknown]
  - Incorrect route of drug administration [Unknown]
